FAERS Safety Report 7294671-2 (Version None)
Quarter: 2011Q1

REPORT INFORMATION
  Report Type: 
  Country: None (occurrence: None)
  Receive Date: 20110216
  Receipt Date: 20100824
  Transmission Date: 20110831
  Serious: Yes (Other)
  Sender: FDA-Public Use
  Company Number: US-BAYER-201015212NA

PATIENT
  Sex: Male
  Weight: 81 kg

DRUGS (62)
  1. MAGNEVIST [Suspect]
     Dates: start: 20050324, end: 20050324
  2. MAGNEVIST [Suspect]
     Dates: start: 20050929, end: 20050929
  3. MAGNEVIST [Suspect]
     Dates: start: 20060202, end: 20060202
  4. MAGNEVIST [Suspect]
     Dates: start: 20060208, end: 20060208
  5. MAGNEVIST [Suspect]
     Dates: start: 20060421, end: 20060421
  6. MAGNEVIST [Suspect]
     Dates: start: 20061114, end: 20061114
  7. LASIX [Concomitant]
  8. NEPHRO-VITE [VITAMINS NOS] [Concomitant]
  9. REGLAN [Concomitant]
  10. REGLAN [Concomitant]
     Dosage: 10 MG TID
  11. NORTRIPTYLINE [Concomitant]
  12. LABETALOL HCL [Concomitant]
  13. MAGNEVIST [Suspect]
     Dates: start: 20070627, end: 20070627
  14. CONTRAST MEDIA [Suspect]
     Indication: ANGIOGRAM
     Dates: start: 20030115, end: 20030115
  15. PROTONIX [Concomitant]
  16. PHOSLO [Concomitant]
  17. MAGNEVIST [Suspect]
     Indication: NUCLEAR MAGNETIC RESONANCE IMAGING BRAIN
     Dates: start: 20030505, end: 20030505
  18. MAGNEVIST [Suspect]
     Dates: start: 20051026, end: 20051026
  19. CONTRAST MEDIA [Suspect]
     Dates: start: 20030828, end: 20030828
  20. NEXIUM [Concomitant]
  21. NORVASC [Concomitant]
  22. SENSIPAR [Concomitant]
  23. MARINOL [Concomitant]
  24. PREDNISONE [Concomitant]
     Dosage: 10 MG DAILY
  25. MARINOL [Concomitant]
  26. MEGACE [Concomitant]
  27. MAGNEVIST [Suspect]
     Dates: start: 20070807, end: 20070807
  28. INSULIN PORCINE [Concomitant]
  29. NARCAN [Concomitant]
  30. KAYEXALATE [Concomitant]
  31. MAGNEVIST [Suspect]
     Indication: NUCLEAR MAGNETIC RESONANCE IMAGING
     Dates: start: 20020917, end: 20020917
  32. MAGNEVIST [Suspect]
     Dates: start: 20040804, end: 20040804
  33. MAGNEVIST [Suspect]
     Dates: start: 20040806, end: 20040806
  34. CONTRAST MEDIA [Suspect]
     Dates: start: 20040212, end: 20040212
  35. CLONIDINE HYDROCHLORIDE [Concomitant]
  36. TRAZODONE HCL [Concomitant]
  37. NEURONTIN [Concomitant]
  38. RITALIN [Concomitant]
  39. LIDOCAINE HYDROCHLORIDE [Concomitant]
  40. MAGNEVIST [Suspect]
     Dates: start: 20060914, end: 20060914
  41. EPOGEN [Concomitant]
  42. MAGNEVIST [Suspect]
     Indication: ANGIOGRAM
     Dates: start: 20040329, end: 20040329
  43. MAGNEVIST [Suspect]
     Dates: start: 20060930, end: 20060930
  44. MAGNEVIST [Suspect]
     Dates: start: 20070131, end: 20070131
  45. MAGNEVIST [Suspect]
     Dates: start: 20070426, end: 20070426
  46. CONTRAST MEDIA [Suspect]
     Indication: NUCLEAR MAGNETIC RESONANCE IMAGING
     Dates: start: 20030312, end: 20030312
  47. CONTRAST MEDIA [Suspect]
     Indication: NUCLEAR MAGNETIC RESONANCE IMAGING BRAIN
     Dates: start: 20030708, end: 20030708
  48. HYDROMORPHONE HCL [Concomitant]
  49. KEPPRA [Concomitant]
  50. RENAGEL [Concomitant]
     Route: 048
  51. OXYFAST [Concomitant]
  52. METHADONE HYDROCHLORIDE [Concomitant]
  53. ZEMPLAR [Concomitant]
  54. VENOFER [Concomitant]
  55. DIOVAN [Concomitant]
  56. LABETALOL HYDROCHLORIDE [Concomitant]
  57. OXYCONTIN [Concomitant]
  58. VALIUM [Concomitant]
  59. DILAUDID [Concomitant]
  60. ALTACE [Concomitant]
  61. DECADRON [Concomitant]
  62. AVELOX [Concomitant]

REACTIONS (20)
  - CONTUSION [None]
  - OEDEMA PERIPHERAL [None]
  - ECCHYMOSIS [None]
  - PETECHIAE [None]
  - PURPURA [None]
  - SKIN ULCER HAEMORRHAGE [None]
  - PAIN [None]
  - PRURITUS [None]
  - ASTHENIA [None]
  - NEPHROGENIC SYSTEMIC FIBROSIS [None]
  - ARTHRALGIA [None]
  - PIGMENTATION DISORDER [None]
  - RASH MACULAR [None]
  - MOBILITY DECREASED [None]
  - PARAESTHESIA [None]
  - GENERALISED OEDEMA [None]
  - RASH [None]
  - SKIN PLAQUE [None]
  - SKIN HYPERPIGMENTATION [None]
  - PAIN IN EXTREMITY [None]
